FAERS Safety Report 10173209 (Version 1)
Quarter: 2014Q2

REPORT INFORMATION
  Report Type: Spontaneous
  Country: US (occurrence: None)
  Receive Date: 20140514
  Receipt Date: 20140514
  Transmission Date: 20141212
  Serious: Yes (Life-Threatening)
  Sender: FDA-Public Use
  Company Number: None

PATIENT
  Age: 69 Year
  Sex: Male
  Weight: 73 kg

DRUGS (10)
  1. CHLORHEXIDINE [Suspect]
     Indication: INFECTION
     Dosage: 15ML Q72H, TOPICAL
     Route: 061
     Dates: start: 20140503, end: 20140509
  2. ASPIRIN [Concomitant]
  3. ATORVA [Concomitant]
  4. PLAVIX [Concomitant]
  5. LASIX [Concomitant]
  6. LEVOFLOXAXIN [Concomitant]
  7. FLAGYL [Concomitant]
  8. PHENYLEPHRINE PRESSOR [Concomitant]
  9. BOWEL REGIMENS [Concomitant]
  10. ASPIRIN [Concomitant]

REACTIONS (1)
  - Pyrexia [None]
